FAERS Safety Report 11835993 (Version 1)
Quarter: 2015Q4

REPORT INFORMATION
  Report Type: Spontaneous
  Country: US (occurrence: None)
  Receive Date: 20151214
  Receipt Date: 20151214
  Transmission Date: 20160305
  Serious: No
  Sender: FDA-Public Use
  Company Number: None

PATIENT
  Age: 73 Year
  Sex: Male

DRUGS (1)
  1. ADCIRCA [Suspect]
     Active Substance: TADALAFIL
     Indication: HELMINTHIC INFECTION
     Route: 048

REACTIONS (2)
  - Cataract [None]
  - Vision blurred [None]

NARRATIVE: CASE EVENT DATE: 20151210
